FAERS Safety Report 26203862 (Version 1)
Quarter: 2025Q4

REPORT INFORMATION
  Report Type: Spontaneous
  Country: US (occurrence: None)
  Receive Date: 20251224
  Receipt Date: 20251224
  Transmission Date: 20260118
  Serious: Yes (Life-Threatening, Disabling, Other)
  Sender: FDA-CTU
  Company Number: None

PATIENT
  Age: 27 Year
  Sex: Female
  Weight: 67.5 kg

DRUGS (1)
  1. XANAX [Suspect]
     Active Substance: ALPRAZOLAM
     Dates: start: 20131126, end: 20240412

REACTIONS (17)
  - Drug dependence [None]
  - Drug withdrawal syndrome [None]
  - Drug tolerance [None]
  - Anxiety [None]
  - Sleep disorder [None]
  - Asthenia [None]
  - Panic attack [None]
  - Amnesia [None]
  - Disturbance in attention [None]
  - Suicidal ideation [None]
  - Suicide attempt [None]
  - Psychotic disorder [None]
  - Neuralgia [None]
  - Arthralgia [None]
  - Cognitive disorder [None]
  - Nervous system disorder [None]
  - Personal relationship issue [None]

NARRATIVE: CASE EVENT DATE: 20240412
